FAERS Safety Report 20323300 (Version 3)
Quarter: 2022Q1

REPORT INFORMATION
  Report Type: Spontaneous
  Country: US (occurrence: US)
  Receive Date: 20220111
  Receipt Date: 20220126
  Transmission Date: 20220424
  Serious: Yes (Hospitalization, Other)
  Sender: FDA-Public Use
  Company Number: US-PFIZER INC-202101872091

PATIENT
  Age: 66 Year
  Sex: Female
  Weight: 58 kg

DRUGS (35)
  1. CARBOPLATIN [Suspect]
     Active Substance: CARBOPLATIN
     Indication: Small cell lung cancer limited stage
     Dosage: 150 MG 1X/WEEK,
     Route: 017
     Dates: start: 2021
  2. CARBOPLATIN [Suspect]
     Active Substance: CARBOPLATIN
     Indication: Invasive ductal breast carcinoma
  3. CARBOPLATIN [Suspect]
     Active Substance: CARBOPLATIN
     Indication: Myasthenic syndrome
  4. ELIQUIS [Suspect]
     Active Substance: APIXABAN
     Indication: Deep vein thrombosis
     Dosage: 5 MILLIGRAM, BID
     Dates: start: 20210602, end: 20210702
  5. ELIQUIS [Suspect]
     Active Substance: APIXABAN
     Dosage: 5 MILLIGRAM, BID
  6. FIRDAPSE [Suspect]
     Active Substance: AMIFAMPRIDINE PHOSPHATE
     Indication: Breast cancer female
     Dosage: 20 MG, 4X/DAY
     Route: 048
     Dates: start: 20210503
  7. FIRDAPSE [Suspect]
     Active Substance: AMIFAMPRIDINE PHOSPHATE
     Indication: Myasthenic syndrome
  8. ETOPOSIDE [Suspect]
     Active Substance: ETOPOSIDE
     Dosage: 100 MG 3X/WEEK
     Route: 017
     Dates: start: 2021
  9. PLAVIX [Suspect]
     Active Substance: CLOPIDOGREL BISULFATE
     Dosage: 75 MILIGRAM,  QD
     Route: 065
     Dates: end: 20210702
  10. PLAVIX [Suspect]
     Active Substance: CLOPIDOGREL BISULFATE
     Dosage: 75 MILIGRAM, QD
     Route: 065
  11. NEULASTA [Suspect]
     Active Substance: PEGFILGRASTIM
     Dosage: UNK
     Dates: start: 20210613
  12. NEUPOGEN [Suspect]
     Active Substance: FILGRASTIM
     Dosage: UNK
     Dates: start: 20210620
  13. ASPIRIN [Suspect]
     Active Substance: ASPIRIN
     Dosage: 81 MG, 1X/DAY
  14. ASPIRIN [Suspect]
     Active Substance: ASPIRIN
     Dosage: UNK
  15. PREDNISONE [Concomitant]
     Active Substance: PREDNISONE
     Dosage: 3 MG, 1X/DAY
     Dates: start: 2021
  16. ENALAPRIL [Concomitant]
     Active Substance: ENALAPRIL
     Dosage: 10 MG, 1X/DAY
  17. AMLODIPINE [Concomitant]
     Active Substance: AMLODIPINE BESYLATE
     Dosage: 5 MG, 1X/DAY
  18. OMEPRAZOLE [Concomitant]
     Active Substance: OMEPRAZOLE
     Dosage: UNK, 1X/DAY
  19. CARAFATE [Concomitant]
     Active Substance: SUCRALFATE
     Dosage: 1 TABLET EVERY 6 HOURS
  20. ZOFRAN [Concomitant]
     Active Substance: ONDANSETRON HYDROCHLORIDE
     Dosage: UNK, AS NEEDED
  21. MESTINON [Concomitant]
     Active Substance: PYRIDOSTIGMINE BROMIDE
     Dosage: 60 MG, 3X/DAY
     Route: 017
  22. WELLBUTRIN XL [Concomitant]
     Active Substance: BUPROPION HYDROCHLORIDE
     Dosage: 450 MG, 1X/DAY
  23. HYDROMORPHONE [Concomitant]
     Active Substance: HYDROMORPHONE
     Dosage: UNK, AS NEEDED
  24. OXYCODONE [Concomitant]
     Active Substance: OXYCODONE
     Dosage: UNK, AS NEEDED
  25. MEPRON [Concomitant]
     Active Substance: ATOVAQUONE
     Indication: Pneumonia
     Dosage: UNK, 1X/DAY
  26. ATIVAN [Concomitant]
     Active Substance: LORAZEPAM
     Dosage: 1 GRAM, Q6H
  27. ADDERALL [Concomitant]
     Active Substance: AMPHETAMINE ASPARTATE\AMPHETAMINE SULFATE\DEXTROAMPHETAMINE SACCHARATE\DEXTROAMPHETAMINE SULFATE
     Dosage: 60 MLIGRAM, QD
  28. COREG [Concomitant]
     Active Substance: CARVEDILOL
     Dosage: 6.25 MILIGRAM, BID
  29. LIPITOR [Concomitant]
     Active Substance: ATORVASTATIN CALCIUM
     Dosage: 20 MILIGRAM, QD
  30. SYNTHROID [Concomitant]
     Active Substance: LEVOTHYROXINE SODIUM
     Dosage: 50 PICOGRAM, QD
  31. SYNTHROID [Concomitant]
     Active Substance: LEVOTHYROXINE SODIUM
     Dosage: 0.05 MILIGRAM, QD
  32. CHOLECALCIFEROL [Concomitant]
     Active Substance: CHOLECALCIFEROL
     Dosage: 25 MICROGRAM, QD
  33. FOLIC ACID [Concomitant]
     Active Substance: FOLIC ACID
     Dosage: 1 MILIGRAM, BID
  34. BREO ELLIPTA [Concomitant]
     Active Substance: FLUTICASONE FUROATE\VILANTEROL TRIFENATATE
     Dosage: 1 PUFF INHALED ONCE A DAY FOR 30 DAYS
  35. LEVALBUTEROL [Concomitant]
     Active Substance: LEVALBUTEROL
     Dosage: 45 MICROGRAM

REACTIONS (36)
  - Deep vein thrombosis [Unknown]
  - Sepsis [Unknown]
  - Febrile neutropenia [Unknown]
  - Diverticulitis [Recovering/Resolving]
  - Abdominal pain upper [Unknown]
  - Anaemia [Unknown]
  - Condition aggravated [Unknown]
  - Neutrophil count decreased [Recovering/Resolving]
  - White blood cell count decreased [Unknown]
  - Myasthenic syndrome [Unknown]
  - Haemoglobin decreased [Recovering/Resolving]
  - White blood cell count increased [Recovering/Resolving]
  - Hypokalaemia [Recovered/Resolved]
  - Pneumonia [Unknown]
  - Thrombocytopenia [Unknown]
  - Melaena [Unknown]
  - Abdominal abscess [Unknown]
  - Colectomy [Unknown]
  - Colostomy [Unknown]
  - Leukocytosis [Unknown]
  - Peripheral swelling [Recovering/Resolving]
  - Procedural pain [Unknown]
  - Stoma site discharge [Unknown]
  - Fatigue [Unknown]
  - Diplopia [Unknown]
  - Constipation [Unknown]
  - Diarrhoea [Recovering/Resolving]
  - Asthenia [Unknown]
  - Dyspnoea [Unknown]
  - Pyrexia [Unknown]
  - Chills [Unknown]
  - Rhinorrhoea [Unknown]
  - Abdominal pain lower [Unknown]
  - Muscle spasms [Unknown]
  - Off label use [Unknown]
  - Intentional product use issue [Unknown]

NARRATIVE: CASE EVENT DATE: 20210101
